FAERS Safety Report 5081943-5 (Version None)
Quarter: 2006Q3

REPORT INFORMATION
  Report Type: 
  Country: None (occurrence: None)
  Receive Date: 20060811
  Receipt Date: 20060728
  Transmission Date: 20061208
  Serious: Yes (Hospitalization)
  Sender: FDA-Public Use
  Company Number: 8017791

PATIENT
  Age: 31 Year
  Sex: Male
  Weight: 46 kg

DRUGS (2)
  1. KEPPRA [Suspect]
     Indication: EPILEPSY
     Dosage: 3500 MG /D PO
     Route: 048
     Dates: start: 20050901
  2. TIMOX [Concomitant]

REACTIONS (9)
  - AGGRESSION [None]
  - ANGER [None]
  - CONDITION AGGRAVATED [None]
  - CONVULSION [None]
  - GRAND MAL CONVULSION [None]
  - PARTIAL SEIZURES [None]
  - PSYCHOMOTOR SEIZURES [None]
  - SOMNOLENCE [None]
  - VOMITING [None]
